FAERS Safety Report 7246989-7 (Version None)
Quarter: 2011Q1

REPORT INFORMATION
  Report Type: 
  Country: None (occurrence: None)
  Receive Date: 20110127
  Receipt Date: 20110121
  Transmission Date: 20110831
  Serious: Yes (Death, Life-Threatening, Hospitalization)
  Sender: FDA-Public Use
  Company Number: JP-ACTELION-A-CH2010-35821

PATIENT
  Sex: Male
  Weight: 62 kg

DRUGS (18)
  1. CLOSTRIDIUM BUTYRICUM [Concomitant]
  2. ERYTHROMYCIN ETHYLSUCCINATE [Concomitant]
  3. FEXOFENADINE HCL [Concomitant]
  4. OXYGEN [Concomitant]
  5. POTASSIUM GLUCONATE TAB [Concomitant]
  6. OMEPRAZOLE SODIUM [Concomitant]
  7. BOSENTAN TABLET 62.5 MG JPN [Suspect]
     Indication: PULMONARY HYPERTENSION
     Dosage: 62.5 MG, BID
     Route: 048
     Dates: start: 20100406, end: 20100408
  8. THEOPHYLLINE [Concomitant]
  9. TIOTROPIUM BROMIDE [Concomitant]
  10. AMPICILLIN SODIUM/SULBACTAM SODIUM [Concomitant]
  11. METHYLPREDNISOLONE SODIUM SUCCINATE [Concomitant]
  12. AMBROXOL HYDROCHLORIDE [Concomitant]
  13. MAGNESIUM OXIDE [Concomitant]
  14. SULFAMETHOXAZOLE AND TRIMETHOPRIM [Concomitant]
  15. CANDESARTAN CILEXETIL [Concomitant]
  16. FELBINAC [Concomitant]
  17. HYDROCORTISONE SODIUM SUCCINATE [Concomitant]
  18. FLUTICASONE PROPIONATE W/SALMETEROL XINAFOATE [Concomitant]

REACTIONS (6)
  - CHRONIC OBSTRUCTIVE PULMONARY DISEASE [None]
  - CYANOSIS [None]
  - CONCOMITANT DISEASE AGGRAVATED [None]
  - RESPIRATORY FAILURE [None]
  - DYSPNOEA [None]
  - BILEVEL POSITIVE AIRWAY PRESSURE [None]
